FAERS Safety Report 9432963 (Version 1)
Quarter: 2013Q3

REPORT INFORMATION
  Report Type: Spontaneous
  Country: MY (occurrence: MY)
  Receive Date: 20130731
  Receipt Date: 20130731
  Transmission Date: 20140515
  Serious: Yes (Other)
  Sender: FDA-Public Use
  Company Number: MY-ABBOTT-13X-101-1125910-00

PATIENT
  Sex: 0

DRUGS (1)
  1. KLACID HP7 [Suspect]
     Indication: PRODUCT USED FOR UNKNOWN INDICATION
     Route: 048

REACTIONS (2)
  - Masked facies [Unknown]
  - Hypertonia [Unknown]
